FAERS Safety Report 13116317 (Version 2)
Quarter: 2017Q1

REPORT INFORMATION
  Report Type: Spontaneous
  Country: IT (occurrence: IT)
  Receive Date: 20170116
  Receipt Date: 20170116
  Transmission Date: 20170428
  Serious: Yes (Other)
  Sender: FDA-Public Use
  Company Number: IT-JNJFOC-20170101925

PATIENT

DRUGS (2)
  1. IBUPROFEN. [Suspect]
     Active Substance: IBUPROFEN
     Route: 065
  2. IBUPROFEN. [Suspect]
     Active Substance: IBUPROFEN
     Indication: PRODUCT USED FOR UNKNOWN INDICATION
     Route: 065

REACTIONS (16)
  - Face oedema [Unknown]
  - Tongue oedema [Unknown]
  - Sopor [Unknown]
  - Abdominal pain upper [Unknown]
  - Lip oedema [Unknown]
  - Angioedema [Unknown]
  - Vomiting [Unknown]
  - Diarrhoea [Unknown]
  - Abdominal pain [Unknown]
  - Nausea [Unknown]
  - Eyelid oedema [Unknown]
  - Hypotension [Unknown]
  - Melaena [Unknown]
  - Rash erythematous [Unknown]
  - Hypothermia [Unknown]
  - Urticaria [Unknown]
